FAERS Safety Report 18033990 (Version 2)
Quarter: 2020Q3

REPORT INFORMATION
  Report Type: Spontaneous
  Country: US (occurrence: US)
  Receive Date: 20200716
  Receipt Date: 20200909
  Transmission Date: 20201103
  Serious: No
  Sender: FDA-Public Use
  Company Number: US-ASTRAZENECA-2020SE88525

PATIENT
  Age: 948 Month
  Sex: Female

DRUGS (14)
  1. CARVEDILOL. [Concomitant]
     Active Substance: CARVEDILOL
  2. GABAPENTIN. [Concomitant]
     Active Substance: GABAPENTIN
     Dosage: 2/3DAILY
  3. HUMALOG MIX [Concomitant]
     Active Substance: INSULIN LISPRO
     Dosage: 3 DAILY
  4. ASPIRIN. [Concomitant]
     Active Substance: ASPIRIN
  5. VALSARTAN. [Concomitant]
     Active Substance: VALSARTAN
  6. BYDUREON BCISE [Suspect]
     Active Substance: EXENATIDE
     Indication: DIABETES MELLITUS
     Route: 065
     Dates: start: 202004
  7. PANTOPRAZOLE [Concomitant]
     Active Substance: PANTOPRAZOLE
  8. BYDUREON BCISE [Suspect]
     Active Substance: EXENATIDE
     Indication: DIABETES MELLITUS
     Route: 065
     Dates: start: 202005
  9. BRILINTA [Suspect]
     Active Substance: TICAGRELOR
     Route: 048
  10. FENOFIBRIC ACID. [Concomitant]
     Active Substance: FENOFIBRIC ACID
  11. FOLIC ACID. [Concomitant]
     Active Substance: FOLIC ACID
  12. DICYCLOMINE [Concomitant]
     Active Substance: DICYCLOMINE HYDROCHLORIDE
  13. PREVASTATIN SODIUM [Concomitant]
     Active Substance: PRAVASTATIN SODIUM
  14. MAGNESIUM [Concomitant]
     Active Substance: MAGNESIUM

REACTIONS (3)
  - Pain [Unknown]
  - Swelling [Unknown]
  - Contusion [Unknown]

NARRATIVE: CASE EVENT DATE: 202006
